FAERS Safety Report 6508114-7 (Version None)
Quarter: 2009Q4

REPORT INFORMATION
  Report Type: 
  Country: None (occurrence: None)
  Receive Date: 20091221
  Receipt Date: 20091216
  Transmission Date: 20100525
  Serious: Yes (Other)
  Sender: FDA-Public Use
  Company Number: GR-JNJFOC-20091100133

PATIENT
  Age: 50 Year
  Sex: Female

DRUGS (3)
  1. INVEGA [Suspect]
     Indication: PARANOIA
     Route: 048
  2. INVEGA [Suspect]
     Route: 048
  3. INVEGA [Suspect]
     Route: 048

REACTIONS (4)
  - DYSPNOEA [None]
  - EXTRAPYRAMIDAL DISORDER [None]
  - MASTICATION DISORDER [None]
  - TARDIVE DYSKINESIA [None]
